FAERS Safety Report 12194116 (Version 1)
Quarter: 2016Q1

REPORT INFORMATION
  Report Type: Spontaneous
  Country: US (occurrence: None)
  Receive Date: 20160318
  Receipt Date: 20160318
  Transmission Date: 20160526
  Serious: Yes (Disabling)
  Sender: FDA-Public Use
  Company Number: None

PATIENT
  Age: 67 Year
  Sex: Male
  Weight: 77.11 kg

DRUGS (10)
  1. POLICOSANOL [Concomitant]
  2. VITAMIN D3 [Concomitant]
     Active Substance: CHOLECALCIFEROL
  3. HCTZ [Concomitant]
     Active Substance: HYDROCHLOROTHIAZIDE
  4. ASPRIN [Concomitant]
     Active Substance: ASPIRIN
  5. NATURE MADE MULTI FOR HIM [Concomitant]
  6. NIACIN. [Concomitant]
     Active Substance: NIACIN
  7. LEVOFLOXACIN 750 MG AUROBINDO PHARM [Suspect]
     Active Substance: LEVOFLOXACIN
     Indication: PYREXIA
     Route: 048
     Dates: start: 20160309, end: 20160314
  8. CARVEDILOL. [Concomitant]
     Active Substance: CARVEDILOL
  9. LEVOFLOXACIN 750 MG AUROBINDO PHARM [Suspect]
     Active Substance: LEVOFLOXACIN
     Indication: NASOPHARYNGITIS
     Route: 048
     Dates: start: 20160309, end: 20160314
  10. TRIAMTERENE. [Concomitant]
     Active Substance: TRIAMTERENE

REACTIONS (3)
  - Poisoning [None]
  - Pain in extremity [None]
  - Tendon pain [None]

NARRATIVE: CASE EVENT DATE: 20160315
